FAERS Safety Report 25725272 (Version 1)
Quarter: 2025Q3

REPORT INFORMATION
  Report Type: Spontaneous
  Country: US (occurrence: US)
  Receive Date: 20250826
  Receipt Date: 20250826
  Transmission Date: 20251021
  Serious: No
  Sender: BIOCON
  Company Number: US-MIMS-BCONMC-9382

PATIENT

DRUGS (1)
  1. HULIO [Suspect]
     Active Substance: ADALIMUMAB-FKJP
     Indication: Spondylitis
     Dosage: 40 MILLIGRAM, Q2W, (AS DIRECTED)
     Route: 058
     Dates: start: 202502, end: 2025

REACTIONS (2)
  - Needle issue [Unknown]
  - Device delivery system issue [Unknown]
